FAERS Safety Report 25063492 (Version 3)
Quarter: 2025Q1

REPORT INFORMATION
  Report Type: Spontaneous
  Country: JP (occurrence: JP)
  Receive Date: 20250311
  Receipt Date: 20250318
  Transmission Date: 20250409
  Serious: Yes (Death, Other)
  Sender: PFIZER
  Company Number: JP-PFIZER INC-PV202500028272

PATIENT
  Age: 49 Year
  Sex: Male

DRUGS (1)
  1. ELREXFIO [Suspect]
     Active Substance: ELRANATAMAB-BCMM
     Indication: Plasma cell myeloma
     Route: 058
     Dates: start: 20240811, end: 20250115

REACTIONS (6)
  - Pneumonia [Fatal]
  - Cytokine release syndrome [Recovering/Resolving]
  - Neutropenia [Unknown]
  - Immunodeficiency [Unknown]
  - Plasma cell myeloma [Unknown]
  - Cytomegalovirus infection [Unknown]

NARRATIVE: CASE EVENT DATE: 20240811
